FAERS Safety Report 21043454 (Version 1)
Quarter: 2022Q3

REPORT INFORMATION
  Report Type: Spontaneous
  Country: US (occurrence: US)
  Receive Date: 20220705
  Receipt Date: 20220705
  Transmission Date: 20221027
  Serious: No
  Sender: FDA-Public Use
  Company Number: US-SAREPTA THERAPEUTICS INC.-SRP2021-001789

PATIENT
  Age: 25 Year
  Sex: Male
  Weight: 51.701 kg

DRUGS (3)
  1. EXONDYS 51 [Suspect]
     Active Substance: ETEPLIRSEN
     Indication: Duchenne muscular dystrophy
     Dosage: 1500 MILLIGRAM, WEEKLY
     Route: 042
     Dates: start: 20170803, end: 20210924
  2. EXONDYS 51 [Suspect]
     Active Substance: ETEPLIRSEN
     Dosage: UNK
     Route: 042
     Dates: start: 20211001, end: 20211008
  3. EXONDYS 51 [Suspect]
     Active Substance: ETEPLIRSEN
     Dosage: UNK
     Route: 042
     Dates: start: 20211021, end: 20211028

REACTIONS (2)
  - Product dose omission issue [Unknown]
  - No adverse event [Unknown]

NARRATIVE: CASE EVENT DATE: 20211028
